FAERS Safety Report 20331643 (Version 1)
Quarter: 2022Q1

REPORT INFORMATION
  Report Type: Spontaneous
  Country: FR (occurrence: FR)
  Receive Date: 20220113
  Receipt Date: 20220113
  Transmission Date: 20220423
  Serious: Yes (Hospitalization)
  Sender: FDA-Public Use
  Company Number: None

PATIENT
  Age: 68 Year
  Sex: Male
  Weight: 61.2 kg

DRUGS (19)
  1. EZETIMIBE [Suspect]
     Active Substance: EZETIMIBE
     Indication: Dyslipidaemia
     Dosage: UNIT DOSE : 10 MG
     Route: 048
     Dates: start: 20210902, end: 20210921
  2. PREDNISONE [Concomitant]
     Active Substance: PREDNISONE
     Indication: Prophylaxis against transplant rejection
     Dosage: 10 MG
     Route: 048
  3. BISOPROLOL FUMARATE [Concomitant]
     Active Substance: BISOPROLOL FUMARATE
     Indication: Hypertension
     Dosage: 7.5 MILLIGRAM DAILY; 5MG 1-0-0.5 , BISOPROLOL (FUMARATE DE)
     Route: 048
  4. VALGANCICLOVIR [Concomitant]
     Active Substance: VALGANCICLOVIR
     Indication: Antiviral prophylaxis
     Dosage: 450 MILLIGRAM DAILY; 1-0-0
     Route: 048
  5. ACETAMINOPHEN [Concomitant]
     Active Substance: ACETAMINOPHEN
     Indication: Pain
     Route: 048
  6. ROSUVASTATIN [Concomitant]
     Active Substance: ROSUVASTATIN
     Indication: Dyslipidaemia
     Dosage: 5MG 0-0-1, EVERY OTHER DAY , UNIT DOSE : 5 MG
     Route: 048
  7. TICAGRELOR [Concomitant]
     Active Substance: TICAGRELOR
     Indication: Cardiovascular event prophylaxis
     Dosage: 180 MILLIGRAM DAILY; 1-0-1
     Route: 048
  8. CEFTAZIDIME [Concomitant]
     Active Substance: CEFTAZIDIME
     Indication: Pseudomonas infection
     Dosage: 2 GRAM DAILY; 1-0-1
     Route: 042
     Dates: start: 20210709, end: 20210719
  9. CEFTAZIDIME [Concomitant]
     Active Substance: CEFTAZIDIME
     Dosage: 3 GRAM DAILY; 1-1-1
     Route: 042
     Dates: start: 20210910, end: 20210914
  10. CEFTAZIDIME [Concomitant]
     Active Substance: CEFTAZIDIME
     Dosage: 3 GRAM DAILY; 1-1-1
     Route: 042
     Dates: start: 20210922, end: 20210930
  11. CEFEPIME [Concomitant]
     Active Substance: CEFEPIME HYDROCHLORIDE
     Indication: Pseudomonas infection
     Route: 048
     Dates: start: 20210914, end: 20210922
  12. MELATONIN [Concomitant]
     Active Substance: MELATONIN
     Indication: Insomnia
     Dosage: 2 MILLIGRAM DAILY; 0-0-0-1
     Route: 048
  13. RACECADOTRIL [Concomitant]
     Active Substance: RACECADOTRIL
     Indication: Diarrhoea
     Route: 048
  14. KARDEGIC [Concomitant]
     Active Substance: ASPIRIN DL-LYSINE
     Indication: Cardiovascular event prophylaxis
     Dosage: 75 MILLIGRAM DAILY; 1-0-0 , POWDER FOR ORAL SOLUTION IN SACHET-DOSE
     Route: 048
  15. PROGRAF [Concomitant]
     Active Substance: TACROLIMUS
     Indication: Prophylaxis against transplant rejection
     Dosage: 1 MILLIGRAM DAILY; 1-0-1
     Route: 048
  16. BACTRIM [Concomitant]
     Active Substance: SULFAMETHOXAZOLE\TRIMETHOPRIM
     Indication: Anti-infective therapy
     Dosage: 1 DOSAGE FORMS DAILY; 1-0-0
     Route: 048
  17. PHLOROGLUCINOL [Concomitant]
     Active Substance: PHLOROGLUCINOL
     Indication: Muscle spasms
     Dosage: PHLOROGLUCINOL (TRIMETHYL ETHER DU)
     Route: 048
  18. PANTOPRAZOLE [Concomitant]
     Active Substance: PANTOPRAZOLE
     Indication: Gastrooesophageal reflux prophylaxis
     Dosage: 20 MILLIGRAM DAILY; 0-0-1
     Route: 048
  19. MYFORTIC [Concomitant]
     Active Substance: MYCOPHENOLATE SODIUM
     Indication: Prophylaxis against transplant rejection
     Dosage: 720 MILLIGRAM DAILY; 360MG 1-1-0 , GASTRO-RESISTANT FILM-COATED TABLETS
     Route: 048

REACTIONS (1)
  - Pancreatitis acute [Recovered/Resolved]

NARRATIVE: CASE EVENT DATE: 20210922
